FAERS Safety Report 7050605-7 (Version None)
Quarter: 2010Q4

REPORT INFORMATION
  Report Type: 
  Country: None (occurrence: None)
  Receive Date: 20101018
  Receipt Date: 20101007
  Transmission Date: 20110411
  Serious: Yes (Hospitalization, Other)
  Sender: FDA-Public Use
  Company Number: US-ELI_LILLY_AND_COMPANY-US201001006036

PATIENT
  Sex: Male
  Weight: 86.168 kg

DRUGS (9)
  1. BYETTA [Suspect]
     Dosage: UNK, UNKNOWN
     Route: 058
     Dates: start: 20060201, end: 20071101
  2. GLYBURIDE AND METFORMIN HYDROCHLORIDE [Concomitant]
     Indication: DIABETES MELLITUS
  3. LEVEMIR [Concomitant]
     Indication: DIABETES MELLITUS
  4. NOVOLOG [Concomitant]
     Indication: DIABETES MELLITUS
  5. NIASPAN [Concomitant]
  6. TRICOR [Concomitant]
  7. XANAX [Concomitant]
     Indication: PROPHYLAXIS
  8. ELIGARD [Concomitant]
     Indication: PROSTATE CANCER
  9. ANTIDEPRESSANTS [Concomitant]

REACTIONS (6)
  - DIARRHOEA [None]
  - NAUSEA [None]
  - OFF LABEL USE [None]
  - PANCREATITIS [None]
  - RENAL FAILURE CHRONIC [None]
  - VOMITING [None]
